FAERS Safety Report 23802163 (Version 3)
Quarter: 2024Q2

REPORT INFORMATION
  Report Type: Report from Study
  Country: US (occurrence: US)
  Receive Date: 20240501
  Receipt Date: 20240515
  Transmission Date: 20240716
  Serious: Yes (Hospitalization)
  Sender: FDA-Public Use
  Company Number: US-ABBVIE-5737785

PATIENT
  Sex: Male

DRUGS (1)
  1. SKYRIZI [Suspect]
     Active Substance: RISANKIZUMAB-RZAA
     Indication: Crohn^s disease
     Route: 058
     Dates: start: 20240208

REACTIONS (13)
  - Disorientation [Recovered/Resolved]
  - Crohn^s disease [Unknown]
  - Paraesthesia [Unknown]
  - Dizziness [Unknown]
  - Gait disturbance [Unknown]
  - Impaired work ability [Unknown]
  - Lumbar puncture [Recovering/Resolving]
  - Cerebral disorder [Unknown]
  - External hydrocephalus [Unknown]
  - Headache [Recovered/Resolved]
  - Migraine [Unknown]
  - Photophobia [Not Recovered/Not Resolved]
  - Hyperacusis [Not Recovered/Not Resolved]

NARRATIVE: CASE EVENT DATE: 20240101
